FAERS Safety Report 15945667 (Version 1)
Quarter: 2019Q1

REPORT INFORMATION
  Report Type: Spontaneous
  Country: GB (occurrence: GB)
  Receive Date: 20190211
  Receipt Date: 20190211
  Transmission Date: 20190417
  Serious: Yes (Hospitalization)
  Sender: FDA-Public Use
  Company Number: GB-ACCORD-105687

PATIENT
  Age: 11 Year
  Sex: Male
  Weight: 33.3 kg

DRUGS (5)
  1. SANDOCAL [Concomitant]
     Dates: start: 20180523
  2. RANITIDINE. [Concomitant]
     Active Substance: RANITIDINE
     Dosage: ONGOING
  3. ZOLEDRONIC ACID [Suspect]
     Active Substance: ZOLEDRONIC ACID
     Indication: OSTEOPOROSIS
     Route: 042
     Dates: start: 20180523, end: 20180523
  4. PREDNISOLONE. [Concomitant]
     Active Substance: PREDNISOLONE
     Dosage: 15MG/20MG ALTERNATE DAYS, ONGOING
  5. ERGOCALCIFEROL. [Concomitant]
     Active Substance: ERGOCALCIFEROL
     Dates: start: 20180523

REACTIONS (2)
  - Vomiting [Recovering/Resolving]
  - Electrolyte imbalance [Recovering/Resolving]

NARRATIVE: CASE EVENT DATE: 20180524
